FAERS Safety Report 13392861 (Version 6)
Quarter: 2017Q3

REPORT INFORMATION
  Report Type: Report from Study
  Country: JP (occurrence: JP)
  Receive Date: 20170331
  Receipt Date: 20170811
  Transmission Date: 20171127
  Serious: Yes (Hospitalization, Other)
  Sender: FDA-Public Use
  Company Number: JP-AMGEN-JPNCT2017050149

PATIENT
  Age: 70 Year
  Sex: Male
  Weight: 63.9 kg

DRUGS (45)
  1. PANITUMUMAB [Suspect]
     Active Substance: PANITUMUMAB
     Indication: RECTOSIGMOID CANCER
     Dosage: 440 MG, Q2WK
     Route: 041
     Dates: start: 20170210, end: 20170224
  2. PANITUMUMAB [Suspect]
     Active Substance: PANITUMUMAB
     Dosage: 320 MG, Q2WK
     Route: 041
     Dates: start: 20170317, end: 20170317
  3. OXALIPLATIN. [Suspect]
     Active Substance: OXALIPLATIN
     Dosage: 118 MG, Q2WEEKS
     Route: 041
     Dates: start: 20170224, end: 20170224
  4. 5-FU [Suspect]
     Active Substance: FLUOROURACIL
     Dosage: 2800 MG, Q2WK
     Route: 041
     Dates: start: 20170317
  5. TAKECAB [Concomitant]
     Active Substance: VONOPRAZAN FUMURATE
     Dosage: 10 MG, BID
     Route: 048
     Dates: start: 20170714
  6. CALCIUM LEVOFOLINATE [Concomitant]
     Active Substance: LEVOLEUCOVORIN CALCIUM
     Indication: RECTOSIGMOID CANCER
     Dosage: 350 MG, Q2WEEKS
     Route: 041
     Dates: start: 20170210, end: 20170224
  7. CALCIUM LEVOFOLINATE [Concomitant]
     Active Substance: LEVOLEUCOVORIN CALCIUM
     Dosage: 350 MG, Q2WEEKS
     Route: 041
     Dates: start: 20170210, end: 20170609
  8. NOVORAPID [Concomitant]
     Active Substance: INSULIN ASPART
     Indication: DIABETES MELLITUS
     Dosage: 4 IU, TID
     Route: 058
     Dates: start: 20170128, end: 20170304
  9. PHELLOBERIN [Concomitant]
     Active Substance: BERBERINE\GERANIUM
     Dosage: 2 DF, TID
     Route: 048
     Dates: start: 20170310
  10. BIO-THREE [Concomitant]
     Active Substance: HERBALS
     Indication: ILEOSTOMY
     Dosage: 2 DF, TID
     Route: 048
     Dates: start: 20170107
  11. LIXIANA [Concomitant]
     Active Substance: EDOXABAN TOSYLATE
     Indication: THROMBOSIS IN DEVICE
     Dosage: 30 MG, QD
     Route: 048
     Dates: start: 20170201
  12. AVAPRO [Concomitant]
     Active Substance: IRBESARTAN
     Indication: HYPERTENSION
     Dosage: 1 DF, QD
     Route: 048
     Dates: start: 20170107, end: 20170304
  13. 5-FU [Suspect]
     Active Substance: FLUOROURACIL
     Indication: RECTOSIGMOID CANCER
     Dosage: 700 MG, Q2WEEKS
     Route: 040
     Dates: start: 20170210, end: 20170210
  14. PHELLOBERIN [Concomitant]
     Active Substance: BERBERINE\GERANIUM
     Dosage: 2 DF, TID
     Route: 048
     Dates: start: 20170310, end: 20170709
  15. BIO-THREE [Concomitant]
     Active Substance: HERBALS
     Dosage: 2 DF, TID
     Route: 048
     Dates: start: 20170310, end: 20170709
  16. AMLODIPINE [Concomitant]
     Active Substance: AMLODIPINE BESYLATE
     Indication: HYPERTENSION
     Dosage: 1 DF, QD
     Route: 048
     Dates: start: 20170107, end: 20170304
  17. TAKECAB [Concomitant]
     Active Substance: VONOPRAZAN FUMURATE
     Indication: PROPHYLAXIS
     Dosage: 2 DF, QD
     Route: 048
     Dates: start: 20170210, end: 20170304
  18. TAKECAB [Concomitant]
     Active Substance: VONOPRAZAN FUMURATE
     Dosage: 1 DF, QD
     Route: 048
  19. BIO-THREE [Concomitant]
     Active Substance: HERBALS
     Dosage: 2 DF, TID
     Route: 048
     Dates: start: 20170310
  20. LIXIANA [Concomitant]
     Active Substance: EDOXABAN TOSYLATE
     Dosage: 30 MG, QD
     Route: 048
     Dates: start: 20170311, end: 20170709
  21. OXALIPLATIN. [Suspect]
     Active Substance: OXALIPLATIN
     Indication: RECTOSIGMOID CANCER
     Dosage: 150 MG, Q2WEEKS
     Route: 041
     Dates: start: 20170210, end: 20170210
  22. LIXIANA [Concomitant]
     Active Substance: EDOXABAN TOSYLATE
     Indication: DEEP VEIN THROMBOSIS
     Dosage: 30 MG, QD
     Route: 048
     Dates: start: 20170311
  23. MINOMYCIN [Concomitant]
     Active Substance: MINOCYCLINE HYDROCHLORIDE
     Indication: PROPHYLAXIS
     Dosage: 2 DF, BID
     Route: 048
     Dates: start: 20170210, end: 20170304
  24. URSODEOXYCHOLIC ACID [Concomitant]
     Active Substance: URSODIOL
     Dosage: 100 MG, TID
     Route: 048
     Dates: start: 20170623, end: 20170709
  25. 5-FU [Suspect]
     Active Substance: FLUOROURACIL
     Dosage: 4350 MG, Q2WEEKS
     Route: 041
     Dates: start: 20170210, end: 20170210
  26. TAKECAB [Concomitant]
     Active Substance: VONOPRAZAN FUMURATE
     Dosage: 20 MG, UNK
     Route: 048
     Dates: start: 20170311
  27. BISOPROLOL FUMARATE. [Concomitant]
     Active Substance: BISOPROLOL FUMARATE
     Dosage: 5 MG, QD
     Route: 048
     Dates: start: 20170311, end: 20170709
  28. URSODEOXYCHOLIC ACID [Concomitant]
     Active Substance: URSODIOL
     Indication: HEPATIC FUNCTION ABNORMAL
     Dosage: 100 MG, TID
     Route: 048
     Dates: start: 20170623
  29. OXALIPLATIN. [Suspect]
     Active Substance: OXALIPLATIN
     Dosage: 87 MG, Q2WEEKS
     Route: 041
     Dates: start: 20170317
  30. OXALIPLATIN. [Suspect]
     Active Substance: OXALIPLATIN
     Dosage: 87 MG, Q2WEEKS
     Route: 041
     Dates: start: 20170317, end: 20170609
  31. 5-FU [Suspect]
     Active Substance: FLUOROURACIL
     Dosage: 360 MG, Q2WEEKS
     Route: 040
     Dates: start: 20170224, end: 20170224
  32. CALCIUM LEVOFOLINATE [Concomitant]
     Active Substance: LEVOLEUCOVORIN CALCIUM
     Dosage: 350 MG, Q2WEEKS
     Route: 041
     Dates: start: 20170317
  33. LANTUS [Concomitant]
     Active Substance: INSULIN GLARGINE
     Dosage: 2 IU, QD
     Route: 058
     Dates: end: 20170709
  34. PAPAVER SOMNIFERUM TINCTURE [Concomitant]
     Dosage: 1 G, TID
     Route: 048
     Dates: start: 20170310
  35. BISOPROLOL FUMARATE. [Concomitant]
     Active Substance: BISOPROLOL FUMARATE
     Indication: HYPERTENSION
     Dosage: 1 DF, QD
     Route: 048
     Dates: start: 20170107, end: 20170304
  36. FUROSEMIDE. [Concomitant]
     Active Substance: FUROSEMIDE
     Indication: OEDEMA
     Dosage: 10 MG, QD
     Route: 048
     Dates: start: 20170526, end: 20170709
  37. PANITUMUMAB [Suspect]
     Active Substance: PANITUMUMAB
     Dosage: 3.6 MG/KG, Q2WK
     Route: 041
     Dates: start: 20170414, end: 20170414
  38. 5-FU [Suspect]
     Active Substance: FLUOROURACIL
     Dosage: 3640 MG, Q2WEEKS
     Route: 041
     Dates: start: 20170224, end: 20170224
  39. PHELLOBERIN [Concomitant]
     Active Substance: BERBERINE\GERANIUM
     Indication: ILEOSTOMY
     Dosage: 2 DF, TID
     Route: 048
     Dates: start: 20170127
  40. PAPAVER SOMNIFERUM TINCTURE [Concomitant]
     Indication: ILEOSTOMY
     Dosage: 1 G, TID
     Route: 048
     Dates: start: 20170201
  41. PAPAVER SOMNIFERUM TINCTURE [Concomitant]
     Dosage: 1 G, TID
     Route: 048
     Dates: start: 20170310, end: 20170709
  42. TAKECAB [Concomitant]
     Active Substance: VONOPRAZAN FUMURATE
     Dosage: 1 DF, QD
     Route: 048
     Dates: end: 20170709
  43. NOVORAPID [Concomitant]
     Active Substance: INSULIN ASPART
     Dosage: 4 IU, BID
     Route: 058
     Dates: end: 20170709
  44. LANTUS [Concomitant]
     Active Substance: INSULIN GLARGINE
     Indication: DIABETES MELLITUS
     Dosage: 4 IU, QD
     Route: 058
     Dates: start: 20170227, end: 20170304
  45. BISOPROLOL FUMARATE. [Concomitant]
     Active Substance: BISOPROLOL FUMARATE
     Dosage: 5 MG, QD
     Route: 048
     Dates: start: 20170311

REACTIONS (10)
  - Diarrhoea [Recovered/Resolved]
  - Alanine aminotransferase increased [Unknown]
  - Acute kidney injury [Recovered/Resolved]
  - Gastrointestinal haemorrhage [Recovered/Resolved]
  - Hyperkalaemia [Recovered/Resolved]
  - Hyponatraemia [Unknown]
  - Hypomagnesaemia [Unknown]
  - Aspartate aminotransferase increased [Unknown]
  - Anaemia [Unknown]
  - Spinal compression fracture [Recovering/Resolving]

NARRATIVE: CASE EVENT DATE: 20170305
